FAERS Safety Report 6474967-4 (Version None)
Quarter: 2009Q4

REPORT INFORMATION
  Report Type: 
  Country: None (occurrence: None)
  Receive Date: 20091204
  Receipt Date: 20090616
  Transmission Date: 20100525
  Serious: Yes (Hospitalization)
  Sender: FDA-Public Use
  Company Number: US-ELI_LILLY_AND_COMPANY-US200904001120

PATIENT
  Sex: Female
  Weight: 40.816 kg

DRUGS (2)
  1. ZYPREXA [Suspect]
     Dosage: 5 MG, UNKNOWN
     Dates: start: 20051001
  2. ZYPREXA [Suspect]
     Dosage: 2.5 MG, UNKNOWN
     Dates: start: 20060501

REACTIONS (4)
  - CONVULSION [None]
  - METABOLIC DISORDER [None]
  - TYPE 2 DIABETES MELLITUS [None]
  - WEIGHT INCREASED [None]
